FAERS Safety Report 17101505 (Version 4)
Quarter: 2020Q1

REPORT INFORMATION
  Report Type: Spontaneous
  Country: MX (occurrence: MX)
  Receive Date: 20191202
  Receipt Date: 20200107
  Transmission Date: 20200409
  Serious: Yes (Death, Life-Threatening, Hospitalization, Other)
  Sender: FDA-Public Use
  Company Number: MX-BIOMARINAP-MX-2019-127196

PATIENT
  Age: 23 Month
  Sex: Male
  Weight: 15 kg

DRUGS (1)
  1. ALDURAZYME [Suspect]
     Active Substance: LARONIDASE
     Indication: MUCOPOLYSACCHARIDOSIS I
     Dosage: UNK
     Route: 042
     Dates: start: 20190210, end: 20191111

REACTIONS (12)
  - Brain death [Fatal]
  - Off label use [Unknown]
  - Hypercoagulation [Unknown]
  - Somnolence [Unknown]
  - Diarrhoea [Unknown]
  - Brain oedema [Unknown]
  - Irritability [Unknown]
  - Vomiting [Unknown]
  - Wrong technique in product usage process [Unknown]
  - Myocardial infarction [Fatal]
  - Cardiac failure [Fatal]
  - Noninfective encephalitis [Unknown]

NARRATIVE: CASE EVENT DATE: 20190210
